FAERS Safety Report 22965766 (Version 2)
Quarter: 2023Q4

REPORT INFORMATION
  Report Type: Spontaneous
  Country: JP (occurrence: JP)
  Receive Date: 20230921
  Receipt Date: 20231024
  Transmission Date: 20240110
  Serious: Yes (Death, Other)
  Sender: FDA-Public Use
  Company Number: JP-GILEAD-2023-0644409

PATIENT
  Age: 66 Year
  Sex: Male

DRUGS (1)
  1. EPCLUSA [Suspect]
     Active Substance: SOFOSBUVIR\VELPATASVIR
     Indication: Hepatic cirrhosis
     Dosage: UNK
     Route: 048

REACTIONS (4)
  - Hepatic failure [Fatal]
  - Hepatorenal failure [Unknown]
  - Ascites [Unknown]
  - Spontaneous bacterial peritonitis [Unknown]
